FAERS Safety Report 7029843-5 (Version None)
Quarter: 2010Q4

REPORT INFORMATION
  Report Type: 
  Country: None (occurrence: None)
  Receive Date: 20101006
  Receipt Date: 20100928
  Transmission Date: 20110411
  Serious: Yes (Hospitalization)
  Sender: FDA-Public Use
  Company Number: 2009BI026691

PATIENT
  Age: 48 Year
  Sex: Female

DRUGS (1)
  1. TYSABRI [Suspect]
     Indication: MULTIPLE SCLEROSIS
     Route: 042
     Dates: start: 20090619

REACTIONS (7)
  - ANAEMIA [None]
  - COAGULOPATHY [None]
  - MENORRHAGIA [None]
  - ORAL HERPES [None]
  - URINARY TRACT INFECTION [None]
  - VAGINAL INFECTION [None]
  - VAGINITIS BACTERIAL [None]
